FAERS Safety Report 11663506 (Version 1)
Quarter: 2015Q4

REPORT INFORMATION
  Report Type: Spontaneous
  Country: US (occurrence: None)
  Receive Date: 20151026
  Receipt Date: 20151026
  Transmission Date: 20160304
  Serious: Yes (Hospitalization)
  Sender: FDA-Public Use
  Company Number: None

PATIENT
  Age: 55 Year
  Sex: Male
  Weight: 97.52 kg

DRUGS (7)
  1. ZOLPIDEM [Concomitant]
     Active Substance: ZOLPIDEM\ZOLPIDEM TARTRATE
  2. COLACE [Concomitant]
     Active Substance: DOCUSATE SODIUM
  3. ANIORAZIKE [Concomitant]
  4. SPIRONELACTONE [Concomitant]
  5. HARVONI [Suspect]
     Active Substance: LEDIPASVIR\SOFOSBUVIR
     Indication: HEPATITIS C
     Dosage: 400/90?1X DAILY?ORAL
     Route: 048
     Dates: start: 20150428, end: 20150908
  6. FURANAMIDE [Concomitant]
  7. LACTULOSE. [Concomitant]
     Active Substance: LACTULOSE

REACTIONS (2)
  - Acute kidney injury [None]
  - Hepatic encephalopathy [None]

NARRATIVE: CASE EVENT DATE: 20150803
